FAERS Safety Report 5806222-7 (Version None)
Quarter: 2008Q3

REPORT INFORMATION
  Report Type: 
  Country: None (occurrence: None)
  Receive Date: 20080710
  Receipt Date: 20051103
  Transmission Date: 20090109
  Serious: Yes (Other)
  Sender: FDA-Public Use
  Company Number: IT-ROCHE-572286

PATIENT

DRUGS (2)
  1. PEGASYS [Suspect]
     Route: 065
  2. REBETOL [Suspect]
     Route: 065

REACTIONS (3)
  - DEHYDRATION [None]
  - DYSURIA [None]
  - HYPERGLYCAEMIA [None]
